FAERS Safety Report 6769517-9 (Version None)
Quarter: 2010Q2

REPORT INFORMATION
  Report Type: 
  Country: None (occurrence: None)
  Receive Date: 20100615
  Receipt Date: 20100602
  Transmission Date: 20101027
  Serious: Yes (Hospitalization)
  Sender: FDA-Public Use
  Company Number: FR-SANOFI-AVENTIS-2010SA031774

PATIENT
  Age: 50 Year
  Sex: Female

DRUGS (4)
  1. LOVENOX [Suspect]
     Route: 058
     Dates: start: 20100302, end: 20100317
  2. PROFENID [Suspect]
     Route: 065
     Dates: start: 20100301, end: 20100305
  3. PERFALGAN [Suspect]
     Route: 042
     Dates: start: 20100302, end: 20100305
  4. ATARAX [Concomitant]
     Route: 065
     Dates: start: 20100301, end: 20100305

REACTIONS (6)
  - CYTOLYTIC HEPATITIS [None]
  - DRUG RASH WITH EOSINOPHILIA AND SYSTEMIC SYMPTOMS [None]
  - EOSINOPHILIA [None]
  - PYREXIA [None]
  - RASH MACULAR [None]
  - RASH PRURITIC [None]
